FAERS Safety Report 7767999 (Version 2)
Quarter: 2014Q4

REPORT INFORMATION
  Report Type: Spontaneous
  Country: FR (occurrence: FR)
  Receive Date: 20110120
  Receipt Date: 20141008
  Transmission Date: 20150529
  Serious: Yes (Hospitalization)
  Sender: FDA-Public Use
  Company Number: FR-BRISTOL-MYERS SQUIBB COMPANY-15414972

PATIENT
  Age: 47 Year
  Sex: Female
  Weight: 50 kg

DRUGS (2)
  1. PAROXETINE [Concomitant]
     Active Substance: PAROXETINE\PAROXETINE HYDROCHLORIDE
     Route: 048
  2. SPRYCEL [Suspect]
     Active Substance: DASATINIB
     Indication: CHRONIC MYELOID LEUKAEMIA
     Dosage: INTER ON 15JUN10,RESARTED ON 06JUL10
     Route: 048
     Dates: start: 20080318

REACTIONS (4)
  - Acute respiratory failure [Unknown]
  - Pleural effusion [Recovered/Resolved with Sequelae]
  - Shock [Unknown]
  - Pneumonia legionella [Unknown]

NARRATIVE: CASE EVENT DATE: 2010
